FAERS Safety Report 5867130-9 (Version None)
Quarter: 2008Q3

REPORT INFORMATION
  Report Type: 
  Country: None (occurrence: None)
  Receive Date: 20080902
  Receipt Date: 20080828
  Transmission Date: 20090109
  Serious: Yes (Other)
  Sender: FDA-Public Use
  Company Number: GB-WYE-G02074008

PATIENT
  Sex: Male

DRUGS (1)
  1. TORISEL [Suspect]
     Dosage: 8 WEEKS WORTH OF TORISEL (25MG, FREQUENCY UNKNOWN)
     Route: 042

REACTIONS (1)
  - PULMONARY FIBROSIS [None]
